FAERS Safety Report 4352219-6 (Version None)
Quarter: 2004Q2

REPORT INFORMATION
  Report Type: 
  Country: None (occurrence: None)
  Receive Date: 20040504
  Receipt Date: 20040423
  Transmission Date: 20050107
  Serious: Yes (Other)
  Sender: FDA-Public Use
  Company Number: PHBS2004US05713

PATIENT
  Age: 76 Year
  Sex: Male

DRUGS (2)
  1. VALSARTAN [Suspect]
     Indication: HYPERTENSION
     Dosage: 160 MG/DAY
     Dates: start: 20001214, end: 20010612
  2. LOSARTAN POTASSIUM [Suspect]
     Indication: HYPERTENSION

REACTIONS (3)
  - CLUBBING [None]
  - NAIL DISCOLOURATION [None]
  - ONYCHOMYCOSIS [None]
